FAERS Safety Report 14776414 (Version 1)
Quarter: 2018Q2

REPORT INFORMATION
  Report Type: Spontaneous
  Country: US (occurrence: US)
  Receive Date: 20180418
  Receipt Date: 20180418
  Transmission Date: 20180711
  Serious: No
  Sender: FDA-Public Use
  Company Number: US-ASCENT PHARMACEUTICALS, INC.-2045981

PATIENT
  Age: 52 Year
  Sex: Female
  Weight: 68.18 kg

DRUGS (1)
  1. OXYCODONE AND ACETAMINOPHEN [Suspect]
     Active Substance: ACETAMINOPHEN\OXYCODONE HYDROCHLORIDE
     Indication: PAIN
     Route: 048
     Dates: start: 20180106

REACTIONS (5)
  - Drug ineffective [Unknown]
  - Chest pain [Unknown]
  - Abdominal pain upper [Unknown]
  - Pain in extremity [Unknown]
  - Headache [Unknown]

NARRATIVE: CASE EVENT DATE: 20180106
